FAERS Safety Report 7596792-3 (Version None)
Quarter: 2011Q3

REPORT INFORMATION
  Report Type: 
  Country: None (occurrence: None)
  Receive Date: 20110708
  Receipt Date: 20110704
  Transmission Date: 20111222
  Serious: Yes (Hospitalization, Other)
  Sender: FDA-Public Use
  Company Number: US-TEVA-289157USA

PATIENT
  Age: 35 Year
  Sex: Female

DRUGS (7)
  1. HALOPERIDOL [Suspect]
     Indication: AGITATION
  2. RISPERIDONE [Suspect]
     Dosage: 12 MILLIGRAM;
     Route: 048
  3. PERPHENAZINE [Suspect]
     Dosage: 48 MILLIGRAM;
     Route: 048
  4. VALPROIC ACID [Concomitant]
     Route: 048
  5. BENZTROPINE MESYLATE [Suspect]
     Indication: EXTRAPYRAMIDAL DISORDER
     Dosage: 3 MILLIGRAM;
     Route: 048
  6. LITHIUM [Suspect]
     Dosage: 1200 MILLIGRAM;
     Route: 048
  7. OLANZAPINE [Suspect]
     Dosage: 40 MILLIGRAM;
     Route: 048

REACTIONS (1)
  - ILEUS PARALYTIC [None]
